FAERS Safety Report 6028186-6 (Version None)
Quarter: 2009Q1

REPORT INFORMATION
  Report Type: 
  Country: None (occurrence: None)
  Receive Date: 20090106
  Receipt Date: 20081031
  Transmission Date: 20090719
  Serious: Yes (Hospitalization)
  Sender: FDA-Public Use
  Company Number: BE-JNJFOC-20081100383

PATIENT
  Age: 37 Year
  Sex: Female

DRUGS (7)
  1. HALDOL SOLUTAB [Suspect]
     Indication: DRUG USE FOR UNKNOWN INDICATION
     Dosage: DOSE: 1MG 2TIMES/DAY 3 TABLETS
     Route: 048
  2. XANAX [Concomitant]
     Indication: DRUG USE FOR UNKNOWN INDICATION
     Route: 065
  3. ALPRAZOLAM [Concomitant]
     Indication: DRUG USE FOR UNKNOWN INDICATION
     Route: 065
  4. PANTOZOL [Concomitant]
     Indication: GASTRIC DISORDER
     Route: 065
  5. SEROQUEL [Concomitant]
     Indication: SCHIZOPHRENIA
     Dosage: DOSE: 2X/DAY
     Route: 065
  6. LEPONEX [Concomitant]
     Indication: SCHIZOPHRENIA
     Dosage: DOSE: 2X/DAY
     Route: 065
  7. PAROXETINE HCL [Concomitant]
     Indication: DRUG USE FOR UNKNOWN INDICATION
     Route: 065

REACTIONS (10)
  - DYSKINESIA [None]
  - FEELING ABNORMAL [None]
  - HALLUCINATION, AUDITORY [None]
  - HYPERSOMNIA [None]
  - INTENTIONAL OVERDOSE [None]
  - PARKINSONISM [None]
  - SOMNOLENCE [None]
  - THINKING ABNORMAL [None]
  - TIC [None]
  - WEIGHT INCREASED [None]
